FAERS Safety Report 9406935 (Version 2)
Quarter: 2013Q3

REPORT INFORMATION
  Report Type: Spontaneous
  Country: US (occurrence: US)
  Receive Date: 20130718
  Receipt Date: 20130805
  Transmission Date: 20140515
  Serious: No
  Sender: FDA-Public Use
  Company Number: US-PFIZER INC-2013207900

PATIENT
  Age: 64 Year
  Sex: Male
  Weight: 64.4 kg

DRUGS (2)
  1. NEURONTIN [Suspect]
     Indication: BACK PAIN
     Dosage: 300 MG, 1X/DAY
     Route: 048
     Dates: start: 20130712, end: 201307
  2. NEURONTIN [Suspect]
     Dosage: 300 MG, 2X/DAY
     Route: 048
     Dates: start: 201307

REACTIONS (4)
  - Off label use [Unknown]
  - Activities of daily living impaired [Unknown]
  - Fatigue [Unknown]
  - Headache [Unknown]
